FAERS Safety Report 8850136 (Version 3)
Quarter: 2013Q2

REPORT INFORMATION
  Report Type: Spontaneous
  Country: US (occurrence: US)
  Receive Date: 20121019
  Receipt Date: 20130424
  Transmission Date: 20140414
  Serious: Yes (Hospitalization, Other)
  Sender: FDA-Public Use
  Company Number: US-BAYER-2012-107687

PATIENT
  Age: 24 Year
  Sex: Female
  Weight: 72.56 kg

DRUGS (6)
  1. YAZ [Suspect]
     Dosage: UNK
     Dates: start: 200411, end: 201203
  2. YASMIN [Suspect]
     Dosage: UNK
     Dates: start: 200411, end: 201203
  3. LEXAPRO [Concomitant]
     Dosage: 5 MG, DAILY
     Route: 048
  4. AZITHROMYCIN [Concomitant]
     Dosage: 250 MG, UNK
     Route: 048
     Dates: start: 20120210
  5. IBUPROFEN [Concomitant]
     Indication: PAIN
     Dosage: OCCASIONALLY
     Dates: start: 20120305
  6. HYDROCODONE W/ACETAMINOPHEN [Concomitant]
     Indication: PAIN
     Dosage: 1 EVERY 4 HOURS
     Dates: start: 20120305

REACTIONS (4)
  - Pulmonary embolism [None]
  - Deep vein thrombosis [Recovering/Resolving]
  - Cholecystitis chronic [None]
  - Injury [None]
